FAERS Safety Report 4491543-3 (Version None)
Quarter: 2004Q4

REPORT INFORMATION
  Report Type: 
  Country: None (occurrence: None)
  Receive Date: 20041103
  Receipt Date: 20041026
  Transmission Date: 20050328
  Serious: Yes (Other)
  Sender: FDA-Public Use
  Company Number: PHBS2004CA14394

PATIENT
  Age: 56 Year
  Sex: Female
  Weight: 84 kg

DRUGS (3)
  1. ZELNORM [Suspect]
     Indication: IRRITABLE BOWEL SYNDROME
     Dosage: 3 MG, BID
     Route: 048
     Dates: start: 20041012, end: 20041015
  2. LOSEC [Concomitant]
     Dosage: 20 MG, BID
  3. CONJUGATED ESTROGEN [Concomitant]
     Dosage: 625 MG, QD

REACTIONS (3)
  - ARTHRITIS [None]
  - GROIN PAIN [None]
  - PAIN [None]
